FAERS Safety Report 7995958-8 (Version None)
Quarter: 2011Q4

REPORT INFORMATION
  Report Type: 
  Country: None (occurrence: None)
  Receive Date: 20111220
  Receipt Date: 20111215
  Transmission Date: 20120403
  Serious: Yes (Other)
  Sender: FDA-Public Use
  Company Number: JP-PFIZER INC-2011305760

PATIENT
  Age: 68 Year
  Sex: Male

DRUGS (4)
  1. LEVODOPA [Suspect]
     Dosage: 200 MG/DAY
     Dates: start: 20060927
  2. CABERGOLINE [Suspect]
     Dosage: 1 MG/DAY
     Dates: start: 20060927
  3. CABERGOLINE [Suspect]
     Indication: PARKINSON'S DISEASE
     Dosage: 1 MG/DAY
  4. LEVODOPA [Suspect]
     Indication: PARKINSON'S DISEASE
     Dosage: 200 MG/DAY

REACTIONS (2)
  - HALLUCINATION [None]
  - DELIRIUM [None]
